FAERS Safety Report 14172520 (Version 1)
Quarter: 2017Q4

REPORT INFORMATION
  Report Type: Spontaneous
  Country: US (occurrence: US)
  Receive Date: 20171108
  Receipt Date: 20171108
  Transmission Date: 20180321
  Serious: Yes (Hospitalization)
  Sender: FDA-Public Use
  Company Number: None

PATIENT
  Age: 72 Year
  Sex: Male
  Weight: 99 kg

DRUGS (18)
  1. FENOFIBRATE. [Concomitant]
     Active Substance: FENOFIBRATE
  2. DIGOXIN. [Concomitant]
     Active Substance: DIGOXIN
  3. METOPROLOL TARTRATE. [Concomitant]
     Active Substance: METOPROLOL TARTRATE
  4. TIZANIDINE. [Concomitant]
     Active Substance: TIZANIDINE
  5. SITAGLIPTIN [Concomitant]
     Active Substance: SITAGLIPTIN
  6. RANOLAZINE. [Concomitant]
     Active Substance: RANOLAZINE
  7. BUDESONIDE. [Concomitant]
     Active Substance: BUDESONIDE
  8. FUROSEMIDE. [Concomitant]
     Active Substance: FUROSEMIDE
  9. TRAMADOL. [Suspect]
     Active Substance: TRAMADOL
  10. APIXABAN [Concomitant]
     Active Substance: APIXABAN
  11. ASPIRIN. [Concomitant]
     Active Substance: ASPIRIN
  12. RANITIDINE. [Concomitant]
     Active Substance: RANITIDINE
  13. GLIMEPIRIDE. [Concomitant]
     Active Substance: GLIMEPIRIDE
  14. POTASSIUM CHLORIDE. [Concomitant]
     Active Substance: POTASSIUM CHLORIDE
  15. DAPTOMYCIN. [Suspect]
     Active Substance: DAPTOMYCIN
     Indication: OSTEOMYELITIS CHRONIC
     Route: 042
     Dates: start: 20170925, end: 20171031
  16. FOLIC ACID. [Concomitant]
     Active Substance: FOLIC ACID
  17. ATORVASTATIN [Concomitant]
     Active Substance: ATORVASTATIN
  18. PREGABALIN. [Concomitant]
     Active Substance: PREGABALIN

REACTIONS (4)
  - Asthenia [None]
  - Pneumonia [None]
  - Pulmonary eosinophilia [None]
  - Dyspnoea [None]

NARRATIVE: CASE EVENT DATE: 20171101
